FAERS Safety Report 9128150 (Version 2)
Quarter: 2013Q2

REPORT INFORMATION
  Report Type: Spontaneous
  Country: GB (occurrence: GB)
  Receive Date: 20130228
  Receipt Date: 20130405
  Transmission Date: 20140414
  Serious: Yes (Other)
  Sender: FDA-Public Use
  Company Number: GB-009507513-1302GBR011837

PATIENT
  Age: 70 Year
  Sex: Male

DRUGS (9)
  1. NITRO-DUR [Suspect]
     Dosage: 400 MICROGRAM, PRN
     Route: 060
  2. AMIODARONE [Concomitant]
     Dosage: 100 MG, UNK
  3. ASPIRIN [Concomitant]
     Dosage: 75 MG, UNK
  4. BISOPROLOL [Concomitant]
     Dosage: 10 MG, UNK
  5. CANDESARTAN [Concomitant]
     Dosage: 8 MG, UNK
  6. CLOPIDOGREL [Concomitant]
     Dosage: 75 MG, UNK
  7. FUROSEMIDE [Concomitant]
     Dosage: 40 MG, UNK
  8. OMEPRAZOLE [Concomitant]
     Dosage: 20 MG, UNK
  9. SIMVASTATIN [Concomitant]
     Dosage: 20 MG, UNK

REACTIONS (2)
  - Tongue blistering [Recovered/Resolved]
  - Burning sensation [Recovered/Resolved]
